FAERS Safety Report 8009948-2 (Version None)
Quarter: 2011Q4

REPORT INFORMATION
  Report Type: 
  Country: None (occurrence: None)
  Receive Date: 20111228
  Receipt Date: 20111214
  Transmission Date: 20120403
  Serious: Yes (Other)
  Sender: FDA-Public Use
  Company Number: PHHY2011NL110766

PATIENT
  Sex: Female

DRUGS (1)
  1. LETROZOLE [Suspect]

REACTIONS (1)
  - METABOLIC DISORDER [None]
